FAERS Safety Report 12076029 (Version 1)
Quarter: 2016Q1

REPORT INFORMATION
  Report Type: Spontaneous
  Country: FR (occurrence: FR)
  Receive Date: 20160215
  Receipt Date: 20160215
  Transmission Date: 20160526
  Serious: Yes (Other)
  Sender: FDA-Public Use
  Company Number: FR-ROCHE-1709889

PATIENT
  Age: 62 Year
  Sex: Female
  Weight: 40 kg

DRUGS (9)
  1. ONDANSETRON A [Concomitant]
     Indication: PROPHYLAXIS
     Dosage: FORM STRENGTH 2 MG/ML
     Route: 041
     Dates: start: 20151110, end: 20151111
  2. LEVACT (FRANCE) [Suspect]
     Active Substance: BENDAMUSTINE HYDROCHLORIDE
     Indication: MANTLE CELL LYMPHOMA STAGE IV
     Dosage: FORM STRENGTH 2.5 MG/ML
     Route: 041
     Dates: start: 20151111, end: 20151112
  3. POLARAMINE [Concomitant]
     Active Substance: DEXCHLORPHENIRAMINE MALEATE
     Indication: HYPERSENSITIVITY
     Dosage: FORM STRENGTH 5 MG/1 ML
     Route: 042
     Dates: start: 20151110, end: 20151111
  4. MABTHERA [Suspect]
     Active Substance: RITUXIMAB
     Indication: MANTLE CELL LYMPHOMA STAGE IV
     Route: 041
     Dates: start: 20151110, end: 20151111
  5. PARACETAMOL [Concomitant]
     Active Substance: ACETAMINOPHEN
     Indication: PAIN
     Route: 041
     Dates: start: 20151110, end: 20151111
  6. METHYLPREDNISOLONE. [Concomitant]
     Active Substance: METHYLPREDNISOLONE
     Route: 041
     Dates: start: 20151110, end: 20151111
  7. VELCADE [Suspect]
     Active Substance: BORTEZOMIB
     Indication: MANTLE CELL LYMPHOMA STAGE IV
     Route: 058
     Dates: start: 20151110, end: 20151121
  8. DEXAMETHASONE MYLAN [Concomitant]
     Active Substance: DEXAMETHASONE
     Route: 041
     Dates: start: 20151110, end: 20151111
  9. EMEND [Concomitant]
     Active Substance: APREPITANT
     Indication: PROPHYLAXIS
     Route: 048
     Dates: start: 20151110, end: 20151113

REACTIONS (2)
  - Febrile bone marrow aplasia [Not Recovered/Not Resolved]
  - Nausea [Recovered/Resolved]
